FAERS Safety Report 10642979 (Version 3)
Quarter: 2015Q3

REPORT INFORMATION
  Report Type: Spontaneous
  Country: JP (occurrence: JP)
  Receive Date: 20141210
  Receipt Date: 20150730
  Transmission Date: 20151125
  Serious: Yes (Death, Life-Threatening, Hospitalization)
  Sender: FDA-Public Use
  Company Number: JP-ASTELLAS-2014JP027620AA

PATIENT
  Age: 84 Year
  Sex: Male
  Weight: 47 kg

DRUGS (4)
  1. PARIET [Concomitant]
     Active Substance: RABEPRAZOLE SODIUM
     Indication: GASTRIC ULCER
     Route: 048
     Dates: start: 20140528
  2. MAGMITT [Concomitant]
     Active Substance: MAGNESIUM OXIDE
     Indication: CONSTIPATION
     Route: 048
     Dates: start: 20141015
  3. XTANDI [Suspect]
     Active Substance: ENZALUTAMIDE
     Indication: PROSTATE CANCER
     Route: 048
     Dates: start: 20140814, end: 20141030
  4. HIRUDOID                           /00723701/ [Concomitant]
     Indication: DERMATITIS CONTACT
     Dosage: UNK UNK, UNKNOWN FREQ.
     Route: 062
     Dates: start: 20141015

REACTIONS (1)
  - Putamen haemorrhage [Fatal]

NARRATIVE: CASE EVENT DATE: 20141031
